FAERS Safety Report 7802646-7 (Version None)
Quarter: 2011Q4

REPORT INFORMATION
  Report Type: 
  Country: None (occurrence: None)
  Receive Date: 20111007
  Receipt Date: 20110930
  Transmission Date: 20120403
  Serious: Yes (Other)
  Sender: FDA-Public Use
  Company Number: PHHY2011DE78688

PATIENT
  Sex: Male
  Weight: 66 kg

DRUGS (3)
  1. AMBROXOL [Concomitant]
     Indication: BONE GRAFT LYSIS
     Dosage: 2X1/D
  2. ONBREZ [Suspect]
     Indication: CHRONIC OBSTRUCTIVE PULMONARY DISEASE
     Dosage: 300UG (1 DF),QD
     Dates: start: 20101101
  3. ONBREZ [Suspect]
     Dosage: 150 UG (1 DF), QD

REACTIONS (1)
  - FATIGUE [None]
